FAERS Safety Report 4916558-X (Version None)
Quarter: 2006Q1

REPORT INFORMATION
  Report Type: 
  Country: None (occurrence: None)
  Receive Date: 20060113
  Receipt Date: 20051007
  Transmission Date: 20060701
  Serious: No
  Sender: FDA-Public Use
  Company Number: 2005SP003396

PATIENT
  Age: 75 Year
  Sex: Male
  Weight: 68.0396 kg

DRUGS (3)
  1. LUNESTA (2 MG) [Suspect]
     Dosage: 2 MG; HS; ORAL;  4 MG; HS; ORAL;  6 MG; HS; ORAL
     Route: 048
     Dates: start: 20050101, end: 20050101
  2. LUNESTA (2 MG) [Suspect]
     Dosage: 2 MG; HS; ORAL;  4 MG; HS; ORAL;  6 MG; HS; ORAL
     Route: 048
     Dates: start: 20050801, end: 20050101
  3. LUNESTA (2 MG) [Suspect]
     Dosage: 2 MG; HS; ORAL;  4 MG; HS; ORAL;  6 MG; HS; ORAL
     Route: 048
     Dates: start: 20050923

REACTIONS (2)
  - DRUG INEFFECTIVE [None]
  - INSOMNIA [None]
